FAERS Safety Report 5925093-1 (Version None)
Quarter: 2008Q4

REPORT INFORMATION
  Report Type: 
  Country: None (occurrence: None)
  Receive Date: 20081021
  Receipt Date: 20081016
  Transmission Date: 20090506
  Serious: Yes (Hospitalization, Other)
  Sender: FDA-Public Use
  Company Number: FR-ABBOTT-08P-056-0482501-00

PATIENT
  Sex: Male

DRUGS (1)
  1. HUMIRA [Suspect]
     Indication: ANKYLOSING SPONDYLITIS
     Route: 058
     Dates: start: 20080819, end: 20080819

REACTIONS (6)
  - DYSARTHRIA [None]
  - OEDEMA [None]
  - PARTIAL SEIZURES [None]
  - TETANY [None]
  - THERAPEUTIC EMBOLISATION [None]
  - TREMOR [None]
